FAERS Safety Report 9126998 (Version 2)
Quarter: 2013Q4

REPORT INFORMATION
  Report Type: Report from Study
  Country: CO (occurrence: CO)
  Receive Date: 20130228
  Receipt Date: 20131122
  Transmission Date: 20140711
  Serious: Yes (Hospitalization)
  Sender: FDA-Public Use
  Company Number: PHHY2013CO016353

PATIENT
  Age: 2 Year
  Sex: Male

DRUGS (2)
  1. EXJADE [Suspect]
     Indication: HAEMOLYTIC ANAEMIA
     Dosage: 250 MG, UNK
     Route: 048
     Dates: start: 201206
  2. EXJADE [Suspect]
     Dosage: 125 MG, UNK
     Route: 048
     Dates: start: 20120809, end: 20121210

REACTIONS (4)
  - Postoperative wound infection [Recovered/Resolved]
  - Blood bilirubin abnormal [Unknown]
  - Cholelithiasis [Recovering/Resolving]
  - Affect lability [Unknown]
